FAERS Safety Report 5934370-X (Version None)
Quarter: 2008Q4

REPORT INFORMATION
  Report Type: 
  Country: None (occurrence: None)
  Receive Date: 20081029
  Receipt Date: 20081022
  Transmission Date: 20090506
  Serious: Yes (Death)
  Sender: FDA-Public Use
  Company Number: PHHY2008JP25863

PATIENT
  Age: 35 Year
  Sex: Female

DRUGS (3)
  1. LOPRESSOR [Suspect]
     Dosage: 200 MG
     Route: 048
  2. CIPRALAN [Suspect]
     Indication: ATRIAL FIBRILLATION
     Dosage: 4900 MG
     Route: 048
  3. CLONAZEPAM [Concomitant]
     Dosage: 6 MG
     Route: 048

REACTIONS (2)
  - DRUG TOXICITY [None]
  - SUICIDE ATTEMPT [None]
